FAERS Safety Report 11050426 (Version 1)
Quarter: 2015Q2

REPORT INFORMATION
  Report Type: Spontaneous
  Country: HR (occurrence: HR)
  Receive Date: 20150421
  Receipt Date: 20150421
  Transmission Date: 20150821
  Serious: Yes (Other)
  Sender: FDA-Public Use
  Company Number: HR-ASTRAZENECA-2015SE35011

PATIENT
  Age: 46 Year
  Sex: Female
  Weight: 75 kg

DRUGS (5)
  1. SEROQUEL XR [Suspect]
     Active Substance: QUETIAPINE FUMARATE
     Indication: DELUSIONAL DISORDER, UNSPECIFIED TYPE
     Route: 048
  2. ZOPRAX [Concomitant]
     Route: 048
  3. SEROQUEL XR [Suspect]
     Active Substance: QUETIAPINE FUMARATE
     Indication: DELUSIONAL DISORDER, UNSPECIFIED TYPE
     Route: 048
     Dates: start: 20130601
  4. DIAZEPAM JADRAN [Concomitant]
     Active Substance: DIAZEPAM
     Route: 048
  5. LIORIN [Concomitant]
     Dosage: 25 MG OBLOENE TABLETE
     Route: 048

REACTIONS (2)
  - Visual impairment [Recovering/Resolving]
  - Diplopia [Recovering/Resolving]

NARRATIVE: CASE EVENT DATE: 20141001
